FAERS Safety Report 21314431 (Version 1)
Quarter: 2022Q3

REPORT INFORMATION
  Report Type: Spontaneous
  Country: US (occurrence: None)
  Receive Date: 20220909
  Receipt Date: 20220909
  Transmission Date: 20221027
  Serious: Yes (Other)
  Sender: FDA-Public Use
  Company Number: None

PATIENT
  Age: 52 Year
  Sex: Female
  Weight: 68.95 kg

DRUGS (1)
  1. LEVOTHYROXINE SODIUM [Suspect]
     Active Substance: LEVOTHYROXINE SODIUM
     Indication: Hypothyroidism
     Dosage: FREQUENCY : DAILY;?
     Route: 048
     Dates: start: 19830101, end: 20000101

REACTIONS (8)
  - Urticaria [None]
  - Alopecia [None]
  - Abdominal discomfort [None]
  - Dry skin [None]
  - Onychoclasis [None]
  - Allergic reaction to excipient [None]
  - Product substitution issue [None]
  - Blood thyroid stimulating hormone abnormal [None]
